FAERS Safety Report 10363191 (Version 1)
Quarter: 2014Q1

REPORT INFORMATION
  Report Type: Spontaneous
  Country: US (occurrence: None)
  Receive Date: 20140306
  Receipt Date: 20140306
  Transmission Date: 20141002
  Serious: Yes (Hospitalization)
  Sender: FDA-Public Use
  Company Number: 163-21880-13060280

PATIENT
  Age: 66 Year
  Sex: Female
  Weight: 80.74 kg

DRUGS (12)
  1. REVLIMID [Suspect]
     Indication: PLASMA CELL MYELOMA
     Dosage: 10 MG, 21 IN 21 D, PO
     Route: 048
     Dates: start: 201212
  2. LORTAB (VICODIN) [Concomitant]
  3. PATANOL (OLOPATADINE HYDROCHLORIDE) [Concomitant]
  4. FERROUS SULFATE (FERROUS SULFATE) [Concomitant]
  5. VITAMIN B12 (CYANOCOBALAMIN) [Concomitant]
  6. FOLIC ACID (FOLIC ACID) [Concomitant]
  7. DOXEPIN (DOXEPIN) [Concomitant]
  8. CYMBALTA [Concomitant]
  9. ALLOPURINOL (ALLOPURINOL) [Concomitant]
  10. DEXAMETHASONE (DEXAMETHASONE) [Concomitant]
  11. BENADRYL (DIPHENHYDRAMINE HYDROCHLORIDE) [Concomitant]
  12. ZOFRAN (ONDANSETRON HYDROCHLORIDE) [Concomitant]

REACTIONS (2)
  - Cerebrovascular accident [None]
  - Rash [None]
